FAERS Safety Report 15807203 (Version 1)
Quarter: 2019Q1

REPORT INFORMATION
  Report Type: Spontaneous
  Country: US (occurrence: US)
  Receive Date: 20190110
  Receipt Date: 20190110
  Transmission Date: 20190417
  Serious: Yes (Hospitalization)
  Sender: FDA-Public Use
  Company Number: US-HORIZON-ACT-0382-2018

PATIENT
  Age: 14 Year
  Sex: Male
  Weight: 37.5 kg

DRUGS (1)
  1. ACTIMMUNE [Suspect]
     Active Substance: INTERFERON GAMMA-1B
     Indication: CHRONIC GRANULOMATOUS DISEASE
     Dosage: 60 ?G/ 0.3 ML ON MONDAY, WEDNESDAY AND FRIDAY
     Route: 058

REACTIONS (2)
  - Pyrexia [Unknown]
  - Decreased appetite [Unknown]
